FAERS Safety Report 15807952 (Version 1)
Quarter: 2019Q1

REPORT INFORMATION
  Report Type: Spontaneous
  Country: US (occurrence: US)
  Receive Date: 20190110
  Receipt Date: 20190110
  Transmission Date: 20190417
  Serious: Yes (Other)
  Sender: FDA-Public Use
  Company Number: US-PFIZER INC-2019008226

PATIENT
  Age: 35 Year
  Sex: Female

DRUGS (1)
  1. SOMAVERT [Suspect]
     Active Substance: PEGVISOMANT
     Dosage: 40 MG, DAILY
     Dates: start: 20091231, end: 201807

REACTIONS (15)
  - Prescribed overdose [Unknown]
  - Blood triglycerides increased [Unknown]
  - Glycosylated haemoglobin increased [Unknown]
  - Insulin-like growth factor increased [Unknown]
  - Bone density increased [Unknown]
  - Low density lipoprotein increased [Unknown]
  - Glucose tolerance increased [Unknown]
  - Blood albumin decreased [Unknown]
  - Arthralgia [Unknown]
  - Non-high-density lipoprotein cholesterol increased [Unknown]
  - Blood glucose increased [Unknown]
  - Red cell distribution width increased [Unknown]
  - Abortion spontaneous [Unknown]
  - Blood cholesterol increased [Unknown]
  - Blood growth hormone increased [Unknown]

NARRATIVE: CASE EVENT DATE: 20091231
